FAERS Safety Report 5244578-7 (Version None)
Quarter: 2007Q1

REPORT INFORMATION
  Report Type: 
  Country: None (occurrence: None)
  Receive Date: 20070222
  Receipt Date: 20070214
  Transmission Date: 20070707
  Serious: Yes (Hospitalization)
  Sender: FDA-Public Use
  Company Number: US-AMGEN-US211241

PATIENT
  Sex: Male

DRUGS (18)
  1. ARANESP [Suspect]
     Indication: RENAL FAILURE CHRONIC
     Dates: start: 20060111
  2. FOLIC ACID [Concomitant]
  3. VITAMIN B COMPLEX CAP [Concomitant]
  4. PLAVIX [Concomitant]
  5. AMLODIPINE [Concomitant]
  6. METOPROLOL SUCCINATE [Concomitant]
  7. INSULIN [Concomitant]
  8. ALLOPURINOL SODIUM [Concomitant]
  9. TEMAZEPAM [Concomitant]
  10. LISINOPRIL [Concomitant]
  11. LANSOPRAZOLE [Concomitant]
  12. CARVEDILOL [Concomitant]
  13. SIMVASTATIN [Concomitant]
  14. ASPIRIN [Concomitant]
  15. VALSARTAN [Concomitant]
  16. CALCITRIOL [Concomitant]
  17. RENAGEL [Concomitant]
  18. ASCORBIC ACID [Concomitant]

REACTIONS (1)
  - HAEMOGLOBIN DECREASED [None]
